FAERS Safety Report 16442769 (Version 1)
Quarter: 2019Q2

REPORT INFORMATION
  Report Type: Spontaneous
  Country: US (occurrence: US)
  Receive Date: 20190617
  Receipt Date: 20190617
  Transmission Date: 20190711
  Serious: No
  Sender: FDA-Public Use
  Company Number: US-ELI_LILLY_AND_COMPANY-US201906007457

PATIENT
  Sex: Female

DRUGS (3)
  1. BASAGLAR [Suspect]
     Active Substance: INSULIN GLARGINE
     Indication: TYPE 2 DIABETES MELLITUS
     Dosage: 44 U, UNKNOWN
     Route: 058
     Dates: start: 2016
  2. BASAGLAR [Suspect]
     Active Substance: INSULIN GLARGINE
     Dosage: 44 U, UNKNOWN
     Route: 058
  3. BASAGLAR [Suspect]
     Active Substance: INSULIN GLARGINE
     Dosage: 44 U, UNKNOWN
     Route: 058

REACTIONS (1)
  - Visual impairment [Not Recovered/Not Resolved]
